FAERS Safety Report 18198223 (Version 6)
Quarter: 2021Q2

REPORT INFORMATION
  Report Type: Other
  Country: CA (occurrence: CA)
  Receive Date: 20200826
  Receipt Date: 20210624
  Transmission Date: 20210717
  Serious: Yes (Other)
  Sender: FDA-Public Use
  Company Number: CA-ROCHE-2665018

PATIENT
  Age: 57 Year
  Sex: Male

DRUGS (15)
  1. MODAFINIL. [Concomitant]
     Active Substance: MODAFINIL
  2. CALCIUM PLUS MAGNESIUM [Concomitant]
  3. METAMUCIL [Concomitant]
     Active Substance: PLANTAGO SEED
  4. AMITRIPTYLLINE [Concomitant]
     Active Substance: AMITRIPTYLINE
  5. AMANTADINE. [Concomitant]
     Active Substance: AMANTADINE HYDROCHLORIDE
  6. LYRICA [Concomitant]
     Active Substance: PREGABALIN
  7. BACLOFEN. [Concomitant]
     Active Substance: BACLOFEN
     Dates: start: 20201019
  8. MIRABEGRON [Concomitant]
     Active Substance: MIRABEGRON
     Dates: start: 20210119
  9. OCREVUS [Suspect]
     Active Substance: OCRELIZUMAB
     Route: 042
     Dates: start: 20200408
  10. VITAMIN B12 [Concomitant]
     Active Substance: CYANOCOBALAMIN
  11. OCREVUS [Suspect]
     Active Substance: OCRELIZUMAB
     Indication: RELAPSING-REMITTING MULTIPLE SCLEROSIS
     Dosage: 300 MG AT DAY 0 AND 14, THEN 600 MG EVERY 6 MONTH
     Route: 042
     Dates: start: 20200408
  12. VALPROIC ACID. [Concomitant]
     Active Substance: VALPROIC ACID
  13. CYMBALTA [Suspect]
     Active Substance: DULOXETINE HYDROCHLORIDE
     Indication: PRODUCT USED FOR UNKNOWN INDICATION
     Route: 065
     Dates: start: 20201019
  14. VALACYCLOVIR [Concomitant]
     Active Substance: VALACYCLOVIR HYDROCHLORIDE
  15. VITAMIN D3 [Concomitant]
     Active Substance: CHOLECALCIFEROL

REACTIONS (20)
  - Headache [Not Recovered/Not Resolved]
  - Malaise [Not Recovered/Not Resolved]
  - Chest pain [Not Recovered/Not Resolved]
  - Vision blurred [Not Recovered/Not Resolved]
  - Productive cough [Not Recovered/Not Resolved]
  - Therapeutic product effect decreased [Unknown]
  - Urinary retention [Recovering/Resolving]
  - Oral herpes [Not Recovered/Not Resolved]
  - Dyspnoea [Recovered/Resolved]
  - Night sweats [Recovering/Resolving]
  - Micturition urgency [Recovering/Resolving]
  - Eye pain [Not Recovered/Not Resolved]
  - Cough [Not Recovered/Not Resolved]
  - Pain in extremity [Not Recovered/Not Resolved]
  - Diplopia [Not Recovered/Not Resolved]
  - Gait disturbance [Not Recovered/Not Resolved]
  - Muscular weakness [Not Recovered/Not Resolved]
  - Balance disorder [Not Recovered/Not Resolved]
  - Bladder disorder [Not Recovered/Not Resolved]
  - Muscle spasticity [Not Recovered/Not Resolved]

NARRATIVE: CASE EVENT DATE: 20210330
